FAERS Safety Report 7455960-1 (Version None)
Quarter: 2011Q1

REPORT INFORMATION
  Report Type: 
  Country: None (occurrence: None)
  Receive Date: 20110302
  Receipt Date: 20110104
  Transmission Date: 20110831
  Serious: No
  Sender: FDA-Public Use
  Company Number: 024800

PATIENT
  Sex: Female

DRUGS (1)
  1. CIMZIA [Suspect]
     Indication: CROHN'S DISEASE
     Dosage: EVERY 2 WEEKS SUBCUTANEOUS
     Route: 058
     Dates: start: 20090615

REACTIONS (3)
  - CROHN'S DISEASE [None]
  - HERNIA [None]
  - ANAEMIA [None]
